FAERS Safety Report 4313919-7 (Version None)
Quarter: 2004Q1

REPORT INFORMATION
  Report Type: 
  Country: None (occurrence: None)
  Receive Date: 20040305
  Receipt Date: 20040226
  Transmission Date: 20041129
  Serious: No
  Sender: FDA-Public Use
  Company Number: 7510

PATIENT
  Age: 23 Year
  Sex: Male

DRUGS (4)
  1. DOXORUBICIN HCL [Suspect]
     Indication: BONE SARCOMA
     Dosage: 90 MG/M2 PER_CYCLE IA/IV
     Route: 042
  2. CISPLATIN [Suspect]
     Indication: BONE SARCOMA
     Dosage: 100 MG/M2 PER_CYCLE IA/IV
     Route: 042
  3. METHOTREXATE [Suspect]
     Indication: BONE SARCOMA
     Dosage: 10 G/M2 PER_CYCLE
  4. IFOSFAMIDE [Suspect]
     Indication: BONE SARCOMA
     Dosage: 10 G/M2 PER_CYCLE

REACTIONS (1)
  - SYNOVIAL SARCOMA [None]
